FAERS Safety Report 13129057 (Version 1)
Quarter: 2017Q1

REPORT INFORMATION
  Report Type: Other
  Country: US (occurrence: US)
  Receive Date: 20170119
  Receipt Date: 20170119
  Transmission Date: 20170428
  Serious: Yes (Death)
  Sender: FDA-Public Use
  Company Number: US-VELOXIS PHARMACEUTICALS-1062140

PATIENT
  Age: 11 Year
  Sex: Male

DRUGS (19)
  1. ENVARSUS XR [Suspect]
     Active Substance: TACROLIMUS
     Indication: LIVER TRANSPLANT
  2. VINCRISTINE SULFATE. [Suspect]
     Active Substance: VINCRISTINE SULFATE
  3. DOXORUBICIN [Suspect]
     Active Substance: DOXORUBICIN
  4. TRIMETHOPRIM SULFAMETHOXAZOLE [Suspect]
     Active Substance: SULFAMETHOXAZOLE\TRIMETHOPRIM
  5. GANCICLOVIR. [Suspect]
     Active Substance: GANCICLOVIR
  6. CISPLATIN. [Suspect]
     Active Substance: CISPLATIN
  7. AMBISOME [Suspect]
     Active Substance: AMPHOTERICIN B
  8. AMBISOME [Suspect]
     Active Substance: AMPHOTERICIN B
  9. FLUDARABINE [Suspect]
     Active Substance: FLUDARABINE PHOSPHATE
  10. IRINOTECAN [Suspect]
     Active Substance: IRINOTECAN
  11. PREDNISONE. [Suspect]
     Active Substance: PREDNISONE
  12. 5-FLUOROURACIL [Suspect]
     Active Substance: FLUOROURACIL
  13. BEVACIZUMAB [Suspect]
     Active Substance: BEVACIZUMAB
  14. CYTOGAM [Suspect]
     Active Substance: HUMAN CYTOMEGALOVIRUS IMMUNE GLOBULIN
  15. BUSULFAN. [Suspect]
     Active Substance: BUSULFAN
  16. FLUCONAZOLE. [Suspect]
     Active Substance: FLUCONAZOLE
  17. PENTAMIDINE [Suspect]
     Active Substance: PENTAMIDINE
  18. ALEMTUZUMAB [Suspect]
     Active Substance: ALEMTUZUMAB
  19. SORAFENIB [Suspect]
     Active Substance: SORAFENIB

REACTIONS (6)
  - Multiple organ dysfunction syndrome [Fatal]
  - Respiratory failure [Fatal]
  - Toxoplasmosis [Fatal]
  - Drug administered to patient of inappropriate age [Unknown]
  - Cytomegalovirus infection [Unknown]
  - Aspergillus infection [Unknown]
